FAERS Safety Report 7249432-7 (Version None)
Quarter: 2011Q1

REPORT INFORMATION
  Report Type: 
  Country: None (occurrence: None)
  Receive Date: 20110128
  Receipt Date: 20101220
  Transmission Date: 20110831
  Serious: Yes (Hospitalization, Other)
  Sender: FDA-Public Use
  Company Number: CO-BAYER-2010-006027

PATIENT
  Age: 27 Year
  Sex: Male

DRUGS (9)
  1. CIPRO XR [Suspect]
     Indication: SUICIDE ATTEMPT
     Dosage: UNK
  2. FLURAZEPAM [Suspect]
     Indication: SUICIDE ATTEMPT
     Dosage: 240 MG, ONCE
  3. DIAZEPAM [Suspect]
     Indication: SUICIDE ATTEMPT
     Dosage: 80 MG, ONCE
  4. ACTRON [Suspect]
     Indication: SUICIDE ATTEMPT
     Dosage: 6 G, ONCE
     Route: 048
  5. ANXIOLYTICS [Concomitant]
     Indication: DEPRESSION
  6. MIRTAZAPINE [Suspect]
     Indication: SUICIDE ATTEMPT
     Dosage: UNK
  7. ANTIDEPRESSANTS [Concomitant]
     Indication: DEPRESSION
  8. DEXKETOPROFEN [Suspect]
     Indication: SUICIDE ATTEMPT
     Dosage: 150 MG, ONCE
  9. RUPATADINE [Suspect]
     Indication: SUICIDE ATTEMPT
     Dosage: 100 MG, ONCE

REACTIONS (9)
  - STUPOR [None]
  - DEPRESSED LEVEL OF CONSCIOUSNESS [None]
  - ANURIA [None]
  - PYREXIA [None]
  - RENAL FAILURE ACUTE [None]
  - WHEEZING [None]
  - ELECTROCARDIOGRAM QT PROLONGED [None]
  - ASPIRATION BRONCHIAL [None]
  - RHONCHI [None]
